FAERS Safety Report 23662405 (Version 2)
Quarter: 2024Q4

REPORT INFORMATION
  Report Type: Report from Study
  Country: US (occurrence: US)
  Receive Date: 20240322
  Receipt Date: 20241226
  Transmission Date: 20250114
  Serious: No
  Sender: INCYTE
  Company Number: US-INCYTE CORPORATION-2024IN001537

PATIENT

DRUGS (3)
  1. JAKAFI [Suspect]
     Active Substance: RUXOLITINIB
     Dosage: 5 MILLIGRAM, BID
     Route: 048
     Dates: start: 20201205
  2. JAKAFI [Suspect]
     Active Substance: RUXOLITINIB
     Dosage: 10 MILLIGRAM,  10 MG ONCE A DAY/5MG  ONCE A DAY
     Route: 048
     Dates: start: 20170209
  3. JAKAFI [Suspect]
     Active Substance: RUXOLITINIB
     Dosage: 5 MILLIGRAM, 10 MG ONCE A DAY/5MG  ONCE A DAY
     Route: 048
     Dates: start: 20170209

REACTIONS (2)
  - Splenomegaly [Unknown]
  - Product availability issue [Unknown]
